FAERS Safety Report 6447441-9 (Version None)
Quarter: 2009Q4

REPORT INFORMATION
  Report Type: 
  Country: None (occurrence: None)
  Receive Date: 20091119
  Receipt Date: 20091110
  Transmission Date: 20100525
  Serious: Yes (Hospitalization)
  Sender: FDA-Public Use
  Company Number: DE-ASTRAZENECA-2009SE26395

PATIENT
  Age: 57 Year
  Sex: Male

DRUGS (6)
  1. BELOC ZOK [Suspect]
     Route: 048
     Dates: start: 20090728
  2. AMLODIPINE [Suspect]
     Route: 048
     Dates: start: 20090728, end: 20090820
  3. FLUPHENAZINE [Suspect]
     Route: 030
     Dates: start: 20081201, end: 20090801
  4. CLONIDINE [Suspect]
     Route: 048
  5. DIAZEPAM [Suspect]
  6. RAMIPRIL [Suspect]

REACTIONS (1)
  - PARKINSONISM [None]
